FAERS Safety Report 8128895-9 (Version None)
Quarter: 2012Q1

REPORT INFORMATION
  Report Type: 
  Country: None (occurrence: None)
  Receive Date: 20120210
  Receipt Date: 20110427
  Transmission Date: 20120608
  Serious: Yes (Other)
  Sender: FDA-Public Use
  Company Number: US-BRISTOL-MYERS SQUIBB COMPANY-15703549

PATIENT
  Sex: Female

DRUGS (1)
  1. ORENCIA [Suspect]
     Dosage: LAST INFUSION ON 26-APR-2011

REACTIONS (4)
  - DIZZINESS [None]
  - ERYTHEMA [None]
  - SWELLING FACE [None]
  - DYSPNOEA [None]
